FAERS Safety Report 9761771 (Version 1)
Quarter: 2013Q4

REPORT INFORMATION
  Report Type: Spontaneous
  Country: US (occurrence: US)
  Receive Date: 20131216
  Receipt Date: 20131216
  Transmission Date: 20140711
  Serious: No
  Sender: FDA-Public Use
  Company Number: US-BIOGENIDEC-2013BI108686

PATIENT
  Age: 69 Year
  Sex: Female

DRUGS (6)
  1. TECFIDERA [Suspect]
     Indication: MULTIPLE SCLEROSIS
     Route: 048
     Dates: start: 20130707, end: 20130713
  2. TECFIDERA [Suspect]
     Indication: MULTIPLE SCLEROSIS
     Route: 048
     Dates: start: 20130714
  3. GABAPENTIN [Concomitant]
  4. IMITREX [Concomitant]
  5. KEPPRA [Concomitant]
  6. TORSEMIDE [Concomitant]

REACTIONS (1)
  - Herpes zoster [Not Recovered/Not Resolved]
